FAERS Safety Report 24955036 (Version 1)
Quarter: 2025Q1

REPORT INFORMATION
  Report Type: Spontaneous
  Country: US (occurrence: US)
  Receive Date: 20250211
  Receipt Date: 20250211
  Transmission Date: 20250408
  Serious: No
  Sender: PFIZER
  Company Number: US-PFIZER INC-PV202500014821

PATIENT
  Age: 45 Year
  Sex: Female

DRUGS (1)
  1. IBRANCE [Suspect]
     Active Substance: PALBOCICLIB

REACTIONS (8)
  - Gingival bleeding [Unknown]
  - Gingival pain [Unknown]
  - Muscle spasms [Unknown]
  - Ageusia [Unknown]
  - Taste disorder [Unknown]
  - Epistaxis [Unknown]
  - Decreased appetite [Unknown]
  - Diarrhoea [Unknown]
